FAERS Safety Report 9436490 (Version 2)
Quarter: 2013Q3

REPORT INFORMATION
  Report Type: Report from Study
  Country: TW (occurrence: TW)
  Receive Date: 20130802
  Receipt Date: 20130817
  Transmission Date: 20140515
  Serious: Yes (Hospitalization)
  Sender: FDA-Public Use
  Company Number: TW-ROCHE-1256159

PATIENT
  Sex: Female
  Weight: 54.34 kg

DRUGS (1)
  1. RANIBIZUMAB [Suspect]
     Indication: DIABETIC RETINAL OEDEMA
     Route: 050
     Dates: start: 20130426

REACTIONS (1)
  - Gallbladder polyp [Recovered/Resolved]
